FAERS Safety Report 10490061 (Version 1)
Quarter: 2014Q4

REPORT INFORMATION
  Report Type: Spontaneous
  Country: GB (occurrence: GB)
  Receive Date: 20141002
  Receipt Date: 20141002
  Transmission Date: 20150528
  Serious: Yes (Hospitalization)
  Sender: FDA-Public Use
  Company Number: GB-TEVA-511737ISR

PATIENT
  Age: 79 Year
  Sex: Male
  Weight: 80 kg

DRUGS (12)
  1. WARFARIN [Interacting]
     Active Substance: WARFARIN
     Indication: ATRIAL FIBRILLATION
     Route: 048
     Dates: start: 20120101
  2. GLYCERYL TRINITRATE [Concomitant]
     Active Substance: NITROGLYCERIN
  3. METFORMIN [Concomitant]
     Active Substance: METFORMIN HYDROCHLORIDE
     Dosage: 850 MILLIGRAM DAILY;
  4. SIMVASTATIN. [Suspect]
     Active Substance: SIMVASTATIN
     Dosage: 40 MILLIGRAM DAILY; AT NIGHT
  5. DAKTARIN [Interacting]
     Active Substance: MICONAZOLE NITRATE
     Indication: FUNGAL INFECTION
     Dosage: 1 DOSAGE FORMS DAILY; APPLY ONCE A DAY AS DIRECTED
     Route: 061
     Dates: start: 20140314, end: 20140407
  6. XALATAN [Concomitant]
     Active Substance: LATANOPROST
  7. CARBOCISTEINE [Concomitant]
     Active Substance: CARBOCYSTEINE
     Dosage: 750 MILLIGRAM DAILY;
  8. PIOGLITAZONE [Concomitant]
     Active Substance: PIOGLITAZONE
     Dosage: 30 MILLIGRAM DAILY;
  9. LATANOPROST. [Concomitant]
     Active Substance: LATANOPROST
  10. ISOSORBIDE MONONITRATE. [Concomitant]
     Active Substance: ISOSORBIDE MONONITRATE
     Dosage: 60 MILLIGRAM DAILY;
  11. BISOPROLOL [Concomitant]
     Active Substance: BISOPROLOL
     Dosage: 10 MILLIGRAM DAILY;
  12. FUROSEMIDE. [Concomitant]
     Active Substance: FUROSEMIDE
     Dosage: 40 MILLIGRAM DAILY;

REACTIONS (6)
  - International normalised ratio increased [Recovered/Resolved]
  - Coagulation time prolonged [Recovered/Resolved]
  - Drug interaction [Recovering/Resolving]
  - Myositis [Recovering/Resolving]
  - Blood creatine phosphokinase increased [Recovering/Resolving]
  - Contusion [Unknown]

NARRATIVE: CASE EVENT DATE: 20140401
